FAERS Safety Report 9656572 (Version 1)
Quarter: 2013Q4

REPORT INFORMATION
  Report Type: Spontaneous
  Country: US (occurrence: US)
  Receive Date: 20131030
  Receipt Date: 20131030
  Transmission Date: 20140711
  Serious: No
  Sender: FDA-Public Use
  Company Number: US-GLAXOSMITHKLINE-A0994513A

PATIENT
  Age: 79 Year
  Sex: Female

DRUGS (1)
  1. SEREVENT [Suspect]
     Indication: HYPOPNOEA
     Dosage: 2PUFF SINGLE DOSE
     Route: 055
     Dates: start: 20120921

REACTIONS (5)
  - Dry mouth [Unknown]
  - Dizziness [Unknown]
  - Accidental overdose [Unknown]
  - Nervousness [Unknown]
  - Muscle spasms [Unknown]
